FAERS Safety Report 14735290 (Version 3)
Quarter: 2019Q1

REPORT INFORMATION
  Report Type: Spontaneous
  Country: US (occurrence: US)
  Receive Date: 20180409
  Receipt Date: 20190123
  Transmission Date: 20190417
  Serious: No
  Sender: FDA-Public Use
  Company Number: US-JNJFOC-20180338396

PATIENT
  Age: 44 Year
  Sex: Female
  Weight: 89.81 kg

DRUGS (2)
  1. SIMPONI [Suspect]
     Active Substance: GOLIMUMAB
     Indication: COLITIS ULCERATIVE
     Route: 058
  2. SIMPONI [Suspect]
     Active Substance: GOLIMUMAB
     Indication: ARTHRITIS
     Route: 058

REACTIONS (3)
  - Underdose [Unknown]
  - Accidental exposure to product [Unknown]
  - Device malfunction [Unknown]

NARRATIVE: CASE EVENT DATE: 20180326
